FAERS Safety Report 20257587 (Version 3)
Quarter: 2022Q1

REPORT INFORMATION
  Report Type: Spontaneous
  Country: PL (occurrence: PL)
  Receive Date: 20211230
  Receipt Date: 20220330
  Transmission Date: 20220423
  Serious: Yes (Hospitalization, Other)
  Sender: FDA-Public Use
  Company Number: PL-002147023-NVSC2020PL305581

PATIENT
  Age: 62 Year
  Sex: Male

DRUGS (10)
  1. METHOTREXATE [Suspect]
     Active Substance: METHOTREXATE
     Indication: Psoriasis
     Dosage: UNK
     Route: 065
     Dates: start: 201801
  2. METHOTREXATE [Suspect]
     Active Substance: METHOTREXATE
     Indication: Psoriatic arthropathy
     Dosage: 25 MILLIGRAM, QW
     Route: 065
     Dates: start: 201112
  3. METHOTREXATE [Suspect]
     Active Substance: METHOTREXATE
     Dosage: 15 MILLIGRAM, QW
     Route: 065
     Dates: start: 201311, end: 201404
  4. METHOTREXATE [Suspect]
     Active Substance: METHOTREXATE
     Dosage: 7.5 MILLIGRAM, QW
     Route: 065
     Dates: start: 201803
  5. METHOTREXATE [Suspect]
     Active Substance: METHOTREXATE
     Dosage: 7.5 MILLIGRAM, QW
     Route: 065
  6. IXEKIZUMAB [Suspect]
     Active Substance: IXEKIZUMAB
     Indication: Psoriasis
     Dosage: UNK (FIRST DOSE)
     Route: 065
     Dates: start: 20190710, end: 201911
  7. IXEKIZUMAB [Suspect]
     Active Substance: IXEKIZUMAB
     Dosage: UNK (SECOND DOSE)
     Route: 065
     Dates: start: 201908
  8. INFLIXIMAB [Suspect]
     Active Substance: INFLIXIMAB
     Indication: Psoriasis
     Dosage: 5 MILLIGRAM/KILOGRAM
     Route: 065
     Dates: start: 201803
  9. REMICADE [Suspect]
     Active Substance: INFLIXIMAB
     Indication: Psoriasis
     Dosage: 5 MILLIGRAM/KILOGRAM, Q2W
     Route: 042
     Dates: start: 201708
  10. REMICADE [Suspect]
     Active Substance: INFLIXIMAB
     Indication: Psoriatic arthropathy
     Dosage: 5 MILLIGRAM/KILOGRAM
     Route: 042
     Dates: start: 201803, end: 201906

REACTIONS (8)
  - Nail disorder [Unknown]
  - Prostate cancer [Unknown]
  - Therapy non-responder [Unknown]
  - Splinter haemorrhages [Unknown]
  - Drug ineffective [Unknown]
  - Hepatic enzyme increased [Unknown]
  - Onycholysis [Unknown]
  - Liver function test increased [Unknown]

NARRATIVE: CASE EVENT DATE: 20180101
